FAERS Safety Report 5915092-8 (Version None)
Quarter: 2008Q4

REPORT INFORMATION
  Report Type: 
  Country: None (occurrence: None)
  Receive Date: 20081010
  Receipt Date: 20081003
  Transmission Date: 20090506
  Serious: Yes (Hospitalization)
  Sender: FDA-Public Use
  Company Number: A0751395A

PATIENT
  Age: 61 Year
  Sex: Male
  Weight: 137.3 kg

DRUGS (6)
  1. AVANDIA [Suspect]
     Indication: TYPE 2 DIABETES MELLITUS
     Dosage: 4MG PER DAY
     Route: 065
     Dates: start: 19990812, end: 20051104
  2. GLUCOPHAGE [Concomitant]
     Dates: start: 19800101
  3. METFORMIN HCL [Concomitant]
     Dates: start: 20000101
  4. PRECOSE [Concomitant]
     Dates: start: 19971104
  5. INSULIN [Concomitant]
  6. DIABETA [Concomitant]
     Dates: start: 19971126

REACTIONS (12)
  - CELLULITIS [None]
  - DEEP VEIN THROMBOSIS [None]
  - EYE DISORDER [None]
  - INFECTION [None]
  - LACRIMATION INCREASED [None]
  - LOCALISED INFECTION [None]
  - MUSCLE SPASMS [None]
  - OEDEMA PERIPHERAL [None]
  - PALPITATIONS [None]
  - SWELLING [None]
  - THROMBOSIS [None]
  - WEIGHT INCREASED [None]
